FAERS Safety Report 10852846 (Version 3)
Quarter: 2015Q1

REPORT INFORMATION
  Report Type: Report from Study
  Country: CO (occurrence: CO)
  Receive Date: 20150223
  Receipt Date: 20150319
  Transmission Date: 20150721
  Serious: Yes (Hospitalization, Other)
  Sender: FDA-Public Use
  Company Number: CO-ROCHE-1541115

PATIENT
  Sex: Female
  Weight: 114.7 kg

DRUGS (2)
  1. LUCENTIS [Suspect]
     Active Substance: RANIBIZUMAB
     Indication: MACULOPATHY
     Dosage: FREQUENCY- EVERY TWO OR THREE MONTHS, LAST APPLICATION WAS IN /NOV/2014
     Route: 050
     Dates: start: 2014
  2. ENALAPRIL [Concomitant]
     Active Substance: ENALAPRIL

REACTIONS (5)
  - Macular oedema [Unknown]
  - Device dislocation [Unknown]
  - Visual acuity reduced [Unknown]
  - Retinal disorder [Unknown]
  - Product use issue [Unknown]

NARRATIVE: CASE EVENT DATE: 2014
